FAERS Safety Report 21472834 (Version 1)
Quarter: 2022Q4

REPORT INFORMATION
  Report Type: Spontaneous
  Country: CN (occurrence: CN)
  Receive Date: 20221018
  Receipt Date: 20221018
  Transmission Date: 20230112
  Serious: Yes (Other)
  Sender: FDA-Public Use
  Company Number: CN-PFIZER INC-PV202200082384

PATIENT
  Age: 63 Year
  Sex: Female
  Weight: 59 kg

DRUGS (5)
  1. ZYVOX [Suspect]
     Active Substance: LINEZOLID
     Indication: Urinary tract infection
     Dosage: 0.6 G, 1X/DAY
     Route: 048
     Dates: start: 20220923, end: 20220927
  2. AMINO ACIDS\DEXTROSE\ELECTROLYTES NOS\SOYBEAN OIL [Suspect]
     Active Substance: AMINO ACIDS\DEXTROSE\ELECTROLYTES NOS\SOYBEAN OIL
     Indication: Vaginal cancer
     Dosage: 1440.000 ML, 1X/DAY
     Route: 041
     Dates: start: 20220923, end: 20220927
  3. AMINO ACIDS\DEXTROSE\ELECTROLYTES NOS\SOYBEAN OIL [Suspect]
     Active Substance: AMINO ACIDS\DEXTROSE\ELECTROLYTES NOS\SOYBEAN OIL
     Indication: Nutritional supplementation
  4. MEI SHI KANG DING [Concomitant]
     Indication: Vaginal cancer
     Dosage: 10 MG, 2X/DAY
     Route: 048
     Dates: start: 20220916, end: 20220927
  5. MEI SHI KANG DING [Concomitant]
     Indication: Cancer pain

REACTIONS (2)
  - Hypertension [Recovering/Resolving]
  - Off label use [Unknown]

NARRATIVE: CASE EVENT DATE: 20220923
